FAERS Safety Report 15962400 (Version 1)
Quarter: 2019Q1

REPORT INFORMATION
  Report Type: Spontaneous
  Country: ES (occurrence: ES)
  Receive Date: 20190214
  Receipt Date: 20190214
  Transmission Date: 20190417
  Serious: Yes (Hospitalization)
  Sender: FDA-Public Use
  Company Number: ES-AMGEN-ESPSP2019020853

PATIENT
  Age: 85 Year
  Sex: Female
  Weight: 78 kg

DRUGS (8)
  1. EMCORETIC [Concomitant]
     Active Substance: BISOPROLOL FUMARATE\HYDROCHLOROTHIAZIDE
     Dosage: UNK (10 MG/25 MG)
     Route: 048
  2. SERC [Concomitant]
     Dosage: 8 MG, UNK
     Route: 048
  3. ATORVASTATINA [Concomitant]
     Active Substance: ATORVASTATIN
     Dosage: UNK (^7400A^)
     Route: 048
  4. OMEPRAZOL [Concomitant]
     Active Substance: OMEPRAZOLE
     Dosage: UNK (^2141A^)
     Route: 048
  5. PROLIA [Suspect]
     Active Substance: DENOSUMAB
     Indication: OSTEOPOROSIS
     Dosage: 60 MG, Q6MO
     Route: 058
     Dates: start: 20140101, end: 20180108
  6. RANITIDINE. [Concomitant]
     Active Substance: RANITIDINE
     Dosage: UNK (^2A^)
     Route: 048
  7. VALSARTAN. [Concomitant]
     Active Substance: VALSARTAN
     Dosage: UNK (^7423A^)
     Route: 048
  8. DISTRANEURINE [Concomitant]
     Active Substance: CLOMETHIAZOLE
     Dosage: UNK
     Route: 048

REACTIONS (2)
  - Rebound effect [Recovered/Resolved with Sequelae]
  - Femur fracture [Recovered/Resolved with Sequelae]

NARRATIVE: CASE EVENT DATE: 20180917
